FAERS Safety Report 7573529 (Version 2)
Quarter: 2016Q1

REPORT INFORMATION
  Report Type: Spontaneous
  Country: KR (occurrence: KR)
  Receive Date: 20100906
  Receipt Date: 20160211
  Transmission Date: 20160526
  Serious: Yes (Other)
  Sender: FDA-Public Use
  Company Number: KR-BRISTOL-MYERS SQUIBB COMPANY-15268899

PATIENT
  Sex: Female

DRUGS (2)
  1. PACLITAXEL. [Suspect]
     Active Substance: PACLITAXEL
     Indication: CERVIX CARCINOMA
     Dosage: 175 MG/M2, UNK
     Route: 065
  2. CISPLATIN. [Suspect]
     Active Substance: CISPLATIN
     Indication: CERVIX CARCINOMA
     Dosage: 75 MG/M2, UNK
     Route: 065

REACTIONS (5)
  - Normal newborn [Unknown]
  - Lymphadenectomy [Unknown]
  - Caesarean section [Unknown]
  - Radical hysterectomy [Unknown]
  - Maternal exposure during pregnancy [Recovered/Resolved]
